FAERS Safety Report 4697299-3 (Version None)
Quarter: 2005Q2

REPORT INFORMATION
  Report Type: 
  Country: None (occurrence: None)
  Receive Date: 20050621
  Receipt Date: 20050621
  Transmission Date: 20051028
  Serious: Yes (Other)
  Sender: FDA-Public Use
  Company Number: None

PATIENT
  Age: 38 Year
  Sex: Male
  Weight: 134 kg

DRUGS (2)
  1. EPIRUBICIN [Suspect]
     Indication: CHORIOCARCINOMA
     Dosage: 90MG/M2   QD X 1D Q 3 WK   INTRAVENOU
     Route: 042
     Dates: start: 20011101, end: 20020131
  2. CISPLATIN [Suspect]
     Dosage: 20MG/M2   QD X 5D Q 3 WK   INTRAVENOU
     Route: 042
     Dates: start: 20011101, end: 20020131

REACTIONS (2)
  - ARTHRALGIA [None]
  - SHOULDER PAIN [None]
